FAERS Safety Report 4945116-6 (Version None)
Quarter: 2006Q1

REPORT INFORMATION
  Report Type: 
  Country: None (occurrence: None)
  Receive Date: 20060117
  Receipt Date: 20050816
  Transmission Date: 20060701
  Serious: Yes (Other)
  Sender: FDA-Public Use
  Company Number: A03200502526

PATIENT
  Age: 79 Year
  Sex: Female
  Weight: 48.0813 kg

DRUGS (1)
  1. PLAVIX [Suspect]
     Indication: TRANSIENT ISCHAEMIC ATTACK
     Dosage: 75 MG QD - ORAL
     Route: 048
     Dates: end: 20050801

REACTIONS (4)
  - ASTHENIA [None]
  - DIZZINESS [None]
  - MALAISE [None]
  - THROMBOCYTOPENIA [None]
